FAERS Safety Report 11140266 (Version 1)
Quarter: 2015Q2

REPORT INFORMATION
  Report Type: Spontaneous
  Country: IE (occurrence: IE)
  Receive Date: 20150527
  Receipt Date: 20150527
  Transmission Date: 20150821
  Serious: Yes (Other)
  Sender: FDA-Public Use
  Company Number: IE-WATSON-2015-10193

PATIENT
  Age: 41 Year
  Sex: Male

DRUGS (1)
  1. CYCLOSPORINE (UNKNOWN) [Suspect]
     Active Substance: CYCLOSPORINE
     Indication: PSORIASIS
     Dosage: 4 MG/KG, DAILY
     Route: 065

REACTIONS (4)
  - Pseudolymphoma [Recovered/Resolved]
  - Neutropenia [Unknown]
  - Oedema peripheral [Unknown]
  - Night sweats [Unknown]
